FAERS Safety Report 23925414 (Version 1)
Quarter: 2024Q2

REPORT INFORMATION
  Report Type: Spontaneous
  Country: FR (occurrence: FR)
  Receive Date: 20240531
  Receipt Date: 20240531
  Transmission Date: 20240716
  Serious: Yes (Hospitalization)
  Sender: FDA-Public Use
  Company Number: None

PATIENT
  Age: 62 Year
  Sex: Female
  Weight: 74 kg

DRUGS (3)
  1. TARGOCID [Suspect]
     Active Substance: TEICOPLANIN
     Indication: Device related infection
     Dosage: 1600 MG, QD
     Route: 042
     Dates: start: 20240429, end: 20240501
  2. TARGOCID [Suspect]
     Active Substance: TEICOPLANIN
     Dosage: 800 MG, QD
     Route: 042
     Dates: start: 20240502, end: 20240506
  3. RIFAMPIN [Suspect]
     Active Substance: RIFAMPIN
     Indication: Device related infection
     Dosage: 900 MG, QD
     Route: 042
     Dates: start: 20240430, end: 20240506

REACTIONS (2)
  - Rash macular [Recovered/Resolved]
  - Pyrexia [Recovered/Resolved]

NARRATIVE: CASE EVENT DATE: 20240506
